FAERS Safety Report 17374498 (Version 1)
Quarter: 2020Q1

REPORT INFORMATION
  Report Type: Spontaneous
  Country: US (occurrence: US)
  Receive Date: 20200206
  Receipt Date: 20200206
  Transmission Date: 20200409
  Serious: No
  Sender: FDA-Public Use
  Company Number: US-BION-008418

PATIENT
  Sex: Female

DRUGS (6)
  1. BIONPHARMA^S DOFETILIDE CAPSULES 250 MCG [Suspect]
     Active Substance: DOFETILIDE
     Indication: PRODUCT USED FOR UNKNOWN INDICATION
     Dosage: STRENGTH: 250 MCG
     Dates: start: 20190920
  2. LOPERAMIDE [Concomitant]
     Active Substance: LOPERAMIDE
     Indication: DIARRHOEA
     Dosage: STRENGTH: 2 MG, AS NEEDED
  3. METFORMIN [Concomitant]
     Active Substance: METFORMIN HYDROCHLORIDE
     Dosage: STRENGTH: 1000 MG, TWICE A DAY
  4. METOPROLOL. [Concomitant]
     Active Substance: METOPROLOL
     Dosage: STRENGTH: 50 MG, ONCE IN MORNING
  5. WARFARIN [Concomitant]
     Active Substance: WARFARIN
     Dosage: STRENGTH: 5 MG ONE AND HALF TABLET ONCE A DAY, EVERYDAY EXCEPT ON THURSDAY WHEN SHE TOOK 2 TABLETS
  6. LOSARTAN. [Concomitant]
     Active Substance: LOSARTAN
     Dosage: STRENGTH: 25 MG, ONCE IN MORNING

REACTIONS (2)
  - Condition aggravated [Unknown]
  - Pruritus [Unknown]
